FAERS Safety Report 5454076-3 (Version None)
Quarter: 2007Q3

REPORT INFORMATION
  Report Type: 
  Country: None (occurrence: None)
  Receive Date: 20070917
  Receipt Date: 20070702
  Transmission Date: 20080115
  Serious: Yes (Other)
  Sender: FDA-Public Use
  Company Number: US-ASTRAZENECA-2006UW09099

PATIENT
  Age: 383 Month
  Sex: Female
  Weight: 90.9 kg

DRUGS (2)
  1. SEROQUEL [Suspect]
     Indication: DEPRESSION
     Dosage: 25-200MG
     Route: 048
     Dates: start: 20030101, end: 20040101
  2. ZYPREXA [Suspect]
     Dosage: 5-10MG

REACTIONS (1)
  - PANCREATITIS [None]
